FAERS Safety Report 8155133-3 (Version None)
Quarter: 2012Q1

REPORT INFORMATION
  Report Type: 
  Country: None (occurrence: None)
  Receive Date: 20120221
  Receipt Date: 20120216
  Transmission Date: 20120608
  Serious: Yes (Other)
  Sender: FDA-Public Use
  Company Number: US-AMGEN-USASP2012010618

PATIENT
  Age: 26 Year
  Sex: Male

DRUGS (8)
  1. ENBREL [Suspect]
     Indication: PRODUCT USED FOR UNKNOWN INDICATION
     Dosage: UNK
     Dates: end: 20111201
  2. ANESTHETICS [Concomitant]
     Dosage: UNK
     Dates: start: 20110101, end: 20110101
  3. NAPROXEN (ALEVE) [Concomitant]
     Indication: PAIN
  4. HUMIRA [Concomitant]
     Indication: PSORIATIC ARTHROPATHY
     Dosage: 40 MG, Q2WK
     Route: 058
     Dates: start: 20030101, end: 20040101
  5. VICODIN [Concomitant]
     Indication: PAIN
     Dosage: UNK UNK, PRN
  6. HUMIRA [Concomitant]
     Dosage: 40 MG, Q2WK
     Route: 058
     Dates: start: 20120205
  7. ANESTHETICS [Concomitant]
     Dosage: UNK
     Dates: start: 20120101, end: 20120101
  8. NAPROXEN (ALEVE) [Concomitant]
     Indication: SWELLING
     Dosage: UNK UNK, PRN

REACTIONS (7)
  - FALL [None]
  - JOINT SWELLING [None]
  - THERAPEUTIC RESPONSE DECREASED [None]
  - ARTHRALGIA [None]
  - INJECTION SITE PAIN [None]
  - NAUSEA [None]
  - CLAVICLE FRACTURE [None]
